FAERS Safety Report 19862060 (Version 2)
Quarter: 2021Q4

REPORT INFORMATION
  Report Type: Report from Study
  Country: CN (occurrence: CN)
  Receive Date: 20210921
  Receipt Date: 20211019
  Transmission Date: 20220303
  Serious: Yes (Life-Threatening, Hospitalization)
  Sender: FDA-Public Use
  Company Number: 2021A725212

PATIENT
  Age: 27985 Day
  Sex: Male

DRUGS (63)
  1. DURVALUMAB [Suspect]
     Active Substance: DURVALUMAB
     Indication: Non-small cell lung cancer
     Route: 042
     Dates: start: 20210903, end: 20210903
  2. GEMCITABINE [Suspect]
     Active Substance: GEMCITABINE
     Indication: Non-small cell lung cancer
     Route: 042
     Dates: start: 20210903, end: 20210903
  3. GEMCITABINE [Suspect]
     Active Substance: GEMCITABINE
     Indication: Non-small cell lung cancer
     Route: 042
     Dates: start: 20210910, end: 20210910
  4. CARBOPLATIN [Suspect]
     Active Substance: CARBOPLATIN
     Indication: Non-small cell lung cancer
     Dosage: 5.0 AUC EVERY THREE WEEKS
     Route: 042
     Dates: start: 20210903, end: 20210903
  5. ACETYLCYSTEINE SOLUTION FOR INHALATION [Concomitant]
     Indication: Productive cough
     Route: 045
     Dates: start: 20210813, end: 20210901
  6. IPRATROPIUM BROMIDE [Concomitant]
     Active Substance: IPRATROPIUM BROMIDE
     Indication: Productive cough
     Route: 045
     Dates: start: 20210813, end: 20210901
  7. TERBUTALINE SULFATE [Concomitant]
     Active Substance: TERBUTALINE SULFATE
     Indication: Productive cough
     Route: 055
     Dates: start: 20210813, end: 20210901
  8. MONOAMMONIUM GLYCYRRHIZINATE AND CYSTEINE AND SODIUM CHLORIDE INJEC... [Concomitant]
     Indication: Lividity
     Route: 042
     Dates: start: 20210817, end: 20210827
  9. GINKGOLIDE INJECTION [Concomitant]
     Indication: Collateral circulation
     Route: 042
     Dates: start: 20210819, end: 20210827
  10. GINKGOLIDE INJECTION [Concomitant]
     Indication: Collateral circulation
     Route: 042
     Dates: start: 20210909, end: 20210916
  11. DEXAMETHASONE SODIUM PHOSPHATE [Concomitant]
     Active Substance: DEXAMETHASONE SODIUM PHOSPHATE
     Indication: Collateral circulation
     Route: 042
     Dates: start: 20210819, end: 20210827
  12. DEXAMETHASONE SODIUM PHOSPHATE [Concomitant]
     Active Substance: DEXAMETHASONE SODIUM PHOSPHATE
     Indication: Vomiting
     Route: 042
     Dates: start: 20210819, end: 20210827
  13. DEXAMETHASONE SODIUM PHOSPHATE [Concomitant]
     Active Substance: DEXAMETHASONE SODIUM PHOSPHATE
     Indication: Pulmonary oedema
     Route: 042
     Dates: start: 20210819, end: 20210827
  14. DEXAMETHASONE SODIUM PHOSPHATE [Concomitant]
     Active Substance: DEXAMETHASONE SODIUM PHOSPHATE
     Indication: Collateral circulation
     Route: 042
     Dates: start: 20210904, end: 20210904
  15. DEXAMETHASONE SODIUM PHOSPHATE [Concomitant]
     Active Substance: DEXAMETHASONE SODIUM PHOSPHATE
     Indication: Vomiting
     Route: 042
     Dates: start: 20210904, end: 20210904
  16. DEXAMETHASONE SODIUM PHOSPHATE [Concomitant]
     Active Substance: DEXAMETHASONE SODIUM PHOSPHATE
     Indication: Pulmonary oedema
     Route: 042
     Dates: start: 20210904, end: 20210904
  17. ETAMSYLATE INJECTION [Concomitant]
     Indication: Haemostasis
     Route: 042
     Dates: start: 20210826, end: 20210827
  18. ETAMSYLATE INJECTION [Concomitant]
     Indication: Haemostasis
     Route: 042
     Dates: start: 20210831, end: 20210901
  19. ETAMSYLATE INJECTION [Concomitant]
     Indication: Haemostasis
     Route: 042
     Dates: start: 20210911, end: 20210914
  20. VITAMIN K1 INJECTION [Concomitant]
     Indication: Haemostasis
     Route: 042
     Dates: start: 20210826, end: 20210827
  21. VITAMIN K1 INJECTION [Concomitant]
     Indication: Haemostasis
     Route: 042
     Dates: start: 20210911, end: 20210914
  22. OMEPRAZOLE SODIUM FOR INJECTION [Concomitant]
     Indication: Hyperchlorhydria
     Route: 042
     Dates: start: 20210828, end: 20210904
  23. OMEPRAZOLE SODIUM FOR INJECTION [Concomitant]
     Indication: Hyperchlorhydria
     Route: 042
     Dates: start: 20210909, end: 20210911
  24. CYSTEINE\GLYCINE\GLYCYRRHIZIN [Concomitant]
     Active Substance: CYSTEINE\GLYCINE\GLYCYRRHIZIN
     Indication: Kidney small
     Route: 042
     Dates: start: 20210829, end: 20210904
  25. CYSTEINE\GLYCINE\GLYCYRRHIZIN [Concomitant]
     Active Substance: CYSTEINE\GLYCINE\GLYCYRRHIZIN
     Indication: Kidney small
     Route: 042
     Dates: start: 20210909, end: 20210916
  26. CYSTEINE\GLYCINE\GLYCYRRHIZIN [Concomitant]
     Active Substance: CYSTEINE\GLYCINE\GLYCYRRHIZIN
     Indication: Kidney small
     Route: 042
     Dates: start: 20210826, end: 20210828
  27. CALCII DIBUTYRY-LADENOSI NI CYCLOPHOSPHAS FOR INJECTION [Concomitant]
     Indication: Kidney small
     Route: 042
     Dates: start: 20210829, end: 20210904
  28. CALCII DIBUTYRY-LADENOSI NI CYCLOPHOSPHAS FOR INJECTION [Concomitant]
     Indication: Kidney small
     Route: 042
     Dates: start: 20210909, end: 20210916
  29. CALCII DIBUTYRY-LADENOSI NI CYCLOPHOSPHAS FOR INJECTION [Concomitant]
     Indication: Kidney small
     Route: 042
     Dates: start: 20210826, end: 20210828
  30. AMINOMETHYLBENZ OIC ACID INJECTION [Concomitant]
     Indication: Haemostasis
     Route: 042
     Dates: start: 20210831, end: 20210901
  31. TROPISETRON HYDROCHLORIDE INJECTION [Concomitant]
     Indication: Vomiting
     Route: 042
     Dates: start: 20210903, end: 20210904
  32. TROPISETRON HYDROCHLORIDE INJECTION [Concomitant]
     Indication: Vomiting
     Route: 042
     Dates: start: 20210910, end: 20210911
  33. FAT-SOLUBLE VITAMIN(II) [Concomitant]
     Indication: Kidney small
     Dosage: 1 DAILY
     Route: 042
     Dates: start: 20210909, end: 20210916
  34. TANREQING INJECTION [Concomitant]
     Indication: Productive cough
     Route: 042
     Dates: start: 20210909, end: 20210916
  35. POTASSIUM CHLORIDE [Concomitant]
     Active Substance: POTASSIUM CHLORIDE
     Indication: Mineral supplementation
     Route: 042
     Dates: start: 20210909, end: 20210916
  36. POTASSIUM CHLORIDE [Concomitant]
     Active Substance: POTASSIUM CHLORIDE
     Indication: Kidney small
     Route: 042
     Dates: start: 20210909, end: 20210916
  37. POTASSIUM CHLORIDE [Concomitant]
     Active Substance: POTASSIUM CHLORIDE
     Indication: Mineral supplementation
     Route: 042
     Dates: start: 20210903, end: 20210903
  38. POTASSIUM CHLORIDE [Concomitant]
     Active Substance: POTASSIUM CHLORIDE
     Indication: Kidney small
     Route: 042
     Dates: start: 20210903, end: 20210903
  39. POTASSIUM CHLORIDE [Concomitant]
     Active Substance: POTASSIUM CHLORIDE
     Indication: Mineral supplementation
     Route: 042
     Dates: start: 20210903, end: 20210903
  40. POTASSIUM CHLORIDE [Concomitant]
     Active Substance: POTASSIUM CHLORIDE
     Indication: Kidney small
     Route: 042
     Dates: start: 20210903, end: 20210903
  41. POTASSIUM CHLORIDE [Concomitant]
     Active Substance: POTASSIUM CHLORIDE
     Indication: Mineral supplementation
     Route: 042
     Dates: start: 20210904, end: 20210904
  42. POTASSIUM CHLORIDE [Concomitant]
     Active Substance: POTASSIUM CHLORIDE
     Indication: Kidney small
     Route: 042
     Dates: start: 20210904, end: 20210904
  43. POTASSIUM CHLORIDE [Concomitant]
     Active Substance: POTASSIUM CHLORIDE
     Indication: Mineral supplementation
     Route: 042
     Dates: start: 20210910, end: 20210910
  44. POTASSIUM CHLORIDE [Concomitant]
     Active Substance: POTASSIUM CHLORIDE
     Indication: Kidney small
     Route: 042
     Dates: start: 20210910, end: 20210910
  45. POTASSIUM CHLORIDE [Concomitant]
     Active Substance: POTASSIUM CHLORIDE
     Indication: Mineral supplementation
     Route: 042
     Dates: start: 20210826, end: 20210828
  46. POTASSIUM CHLORIDE [Concomitant]
     Active Substance: POTASSIUM CHLORIDE
     Indication: Kidney small
     Route: 042
     Dates: start: 20210826, end: 20210828
  47. POTASSIUM CHLORIDE [Concomitant]
     Active Substance: POTASSIUM CHLORIDE
     Indication: Mineral supplementation
     Route: 042
     Dates: start: 20210904, end: 20210904
  48. POTASSIUM CHLORIDE [Concomitant]
     Active Substance: POTASSIUM CHLORIDE
     Indication: Kidney small
     Route: 042
     Dates: start: 20210904, end: 20210904
  49. CONCENTRATED SODIUM CHLORIDE INJECTION [Concomitant]
     Indication: Blood sodium
     Route: 042
     Dates: start: 20210909, end: 20210916
  50. CONCENTRATED SODIUM CHLORIDE INJECTION [Concomitant]
     Indication: Blood sodium
     Route: 042
     Dates: start: 20210903, end: 20210903
  51. CONCENTRATED SODIUM CHLORIDE INJECTION [Concomitant]
     Indication: Blood sodium
     Route: 042
     Dates: start: 20210904, end: 20210904
  52. IBUPROFEN SUSTAINED RELEASE CAPSULES [Concomitant]
     Indication: Analgesic therapy
     Route: 048
     Dates: start: 20210830, end: 20210909
  53. DICLOFENAC DIETHYLAMINE EMULGEL [Concomitant]
     Indication: Analgesic therapy
     Route: 003
     Dates: start: 20210830, end: 20210902
  54. VITAMIN B6 [Concomitant]
     Active Substance: PYRIDOXINE HYDROCHLORIDE
     Indication: Vitamin supplementation
     Route: 042
     Dates: start: 20210903, end: 20210903
  55. METOCLOPRAMIDEDI HYDROCHLORIDE INJECTION [Concomitant]
     Indication: Vomiting
     Route: 042
     Dates: start: 20210903, end: 20210903
  56. METOCLOPRAMIDEDI HYDROCHLORIDE INJECTION [Concomitant]
     Indication: Vomiting
     Route: 042
     Dates: start: 20210904, end: 20210904
  57. METOCLOPRAMIDEDI HYDROCHLORIDE INJECTION [Concomitant]
     Indication: Vomiting
     Route: 042
     Dates: start: 20210910, end: 20210910
  58. FUROSEMIDE [Concomitant]
     Active Substance: FUROSEMIDE
     Indication: Renal function test
     Route: 042
     Dates: start: 20210903, end: 20210903
  59. FUROSEMIDE [Concomitant]
     Active Substance: FUROSEMIDE
     Indication: Polyuria
     Route: 042
     Dates: start: 20210903, end: 20210903
  60. FUROSEMIDE [Concomitant]
     Active Substance: FUROSEMIDE
     Indication: Renal function test
     Route: 042
     Dates: start: 20210904, end: 20210904
  61. FUROSEMIDE [Concomitant]
     Active Substance: FUROSEMIDE
     Indication: Polyuria
     Route: 042
     Dates: start: 20210904, end: 20210904
  62. INSULIN NOS [Concomitant]
     Active Substance: INSULIN NOS
     Indication: Kidney small
     Dosage: 6.0000 U DAILY
     Route: 042
     Dates: start: 20210826, end: 20210828
  63. HUMAN INTERLEUKIN-11 FOR INJECTION [Concomitant]
     Indication: Plateletcrit
     Route: 058
     Dates: start: 20210911, end: 20210916

REACTIONS (3)
  - Thrombocytopenia [Not Recovered/Not Resolved]
  - Acute respiratory failure [Not Recovered/Not Resolved]
  - Neutrophil count decreased [Not Recovered/Not Resolved]

NARRATIVE: CASE EVENT DATE: 20210911
